FAERS Safety Report 14584329 (Version 3)
Quarter: 2018Q4

REPORT INFORMATION
  Report Type: Spontaneous
  Country: US (occurrence: US)
  Receive Date: 20180228
  Receipt Date: 20181203
  Transmission Date: 20190204
  Serious: Yes (Hospitalization)
  Sender: FDA-Public Use
  Company Number: US-ROCHE-2077086

PATIENT
  Age: 88 Year
  Sex: Female

DRUGS (3)
  1. ESBRIET [Suspect]
     Active Substance: PIRFENIDONE
     Route: 048
     Dates: start: 20170525
  2. ESBRIET [Suspect]
     Active Substance: PIRFENIDONE
     Indication: PULMONARY ARTERIAL HYPERTENSION
     Route: 048
     Dates: start: 20170524
  3. LETAIRIS [Concomitant]
     Active Substance: AMBRISENTAN
     Route: 065
     Dates: end: 20181114

REACTIONS (6)
  - Pulmonary oedema [Unknown]
  - Off label use [Unknown]
  - Diarrhoea [Unknown]
  - Dyspnoea [Unknown]
  - Intentional product use issue [Unknown]
  - Nasopharyngitis [Unknown]

NARRATIVE: CASE EVENT DATE: 20180207
